FAERS Safety Report 12583231 (Version 1)
Quarter: 2016Q3

REPORT INFORMATION
  Report Type: Not Available
  Country: CN (occurrence: CN)
  Receive Date: 20160722
  Receipt Date: 20160722
  Transmission Date: 20161109
  Serious: Yes (Death)
  Sender: FDA-Public Use
  Company Number: CN-NAPPMUNDI-GBR-2016-0038812

PATIENT
  Age: 89 Year
  Sex: Female

DRUGS (6)
  1. MORPHINE SULFATE PR TABLET [Suspect]
     Active Substance: MORPHINE SULFATE
     Dosage: 30 MG, Q12H
     Route: 048
     Dates: start: 20151217, end: 20151224
  2. MORPHINE SULFATE PR TABLET [Suspect]
     Active Substance: MORPHINE SULFATE
     Dosage: 20 MG, Q12H
     Route: 048
     Dates: start: 20151206, end: 20151216
  3. MORPHINE SULFATE PR TABLET [Suspect]
     Active Substance: MORPHINE SULFATE
     Dosage: 10 MG, Q12H
     Route: 048
     Dates: start: 20151030, end: 20151206
  4. MORPHINE HYDROCHLORIDE [Concomitant]
     Active Substance: MORPHINE HYDROCHLORIDE
     Indication: BREAKTHROUGH PAIN
  5. FENTANYL. [Concomitant]
     Active Substance: FENTANYL
     Dosage: 2 PATCH, TID
     Dates: start: 20151231, end: 20160227
  6. MORPHINE SULFATE PR TABLET [Suspect]
     Active Substance: MORPHINE SULFATE
     Indication: CANCER PAIN
     Dosage: 60 MG, Q12H
     Route: 048
     Dates: start: 20151224, end: 20160227

REACTIONS (3)
  - Nausea [Recovered/Resolved]
  - Vomiting [Recovered/Resolved]
  - Rectal cancer [Fatal]

NARRATIVE: CASE EVENT DATE: 20160115
